FAERS Safety Report 15742148 (Version 1)
Quarter: 2018Q4

REPORT INFORMATION
  Report Type: Report from Study
  Country: US (occurrence: US)
  Receive Date: 20181219
  Receipt Date: 20181219
  Transmission Date: 20190205
  Serious: Yes (Other)
  Sender: FDA-Public Use
  Company Number: US-GILEAD-2018-0380471

PATIENT
  Age: 26 Year
  Sex: Male

DRUGS (1)
  1. EMTRICITABINE/TENOFOVIR DISOPROXIL FUMARATE [Suspect]
     Active Substance: EMTRICITABINE\TENOFOVIR DISOPROXIL FUMARATE
     Indication: PROPHYLAXIS AGAINST HIV INFECTION
     Dosage: 500 MG, QD
     Route: 048
     Dates: end: 20181123

REACTIONS (3)
  - Product use issue [Not Recovered/Not Resolved]
  - Headache [Not Recovered/Not Resolved]
  - Intestinal mass [Not Recovered/Not Resolved]

NARRATIVE: CASE EVENT DATE: 20181123
